FAERS Safety Report 11291897 (Version 5)
Quarter: 2016Q2

REPORT INFORMATION
  Report Type: Report from Study
  Country: US (occurrence: US)
  Receive Date: 20150722
  Receipt Date: 20160517
  Transmission Date: 20160815
  Serious: Yes (Hospitalization, Other)
  Sender: FDA-Public Use
  Company Number: US-ALEXION-A201502688

PATIENT
  Sex: Male

DRUGS (1)
  1. SOLIRIS [Suspect]
     Active Substance: ECULIZUMAB
     Indication: PAROXYSMAL NOCTURNAL HAEMOGLOBINURIA
     Dosage: UNK
     Route: 042
     Dates: start: 20150611

REACTIONS (21)
  - Aplastic anaemia [Not Recovered/Not Resolved]
  - Lung consolidation [Unknown]
  - Fatigue [Not Recovered/Not Resolved]
  - Pyrexia [Unknown]
  - Platelet count abnormal [Not Recovered/Not Resolved]
  - Blood bilirubin abnormal [Not Recovered/Not Resolved]
  - Platelet count abnormal [Recovered/Resolved]
  - Aspergillus infection [Not Recovered/Not Resolved]
  - Blood creatinine increased [Not Recovered/Not Resolved]
  - Monocyte count abnormal [Unknown]
  - Red blood cell count abnormal [Unknown]
  - Blood lactate dehydrogenase abnormal [Not Recovered/Not Resolved]
  - Haptoglobin abnormal [Not Recovered/Not Resolved]
  - Pneumonia [Recovered/Resolved]
  - Headache [Not Recovered/Not Resolved]
  - Reticulocyte count abnormal [Not Recovered/Not Resolved]
  - Small intestinal obstruction [Recovered/Resolved]
  - Bilirubin conjugated abnormal [Not Recovered/Not Resolved]
  - Myalgia [Not Recovered/Not Resolved]
  - Haemoglobin abnormal [Not Recovered/Not Resolved]
  - Hospitalisation [Unknown]

NARRATIVE: CASE EVENT DATE: 20150611
